FAERS Safety Report 4394758-8 (Version None)
Quarter: 2004Q3

REPORT INFORMATION
  Report Type: 
  Country: None (occurrence: None)
  Receive Date: 20040706
  Receipt Date: 20040702
  Transmission Date: 20050211
  Serious: Yes (Other)
  Sender: FDA-Public Use
  Company Number: NLWYE572610FEB04

PATIENT
  Age: 55 Year
  Sex: Female

DRUGS (5)
  1. EFFEXOR [Suspect]
     Indication: DEPRESSION
     Dosage: 37.5 MG 1X PER 1 DAY
     Route: 048
     Dates: start: 20040116, end: 20040220
  2. EFFEXOR [Suspect]
     Indication: DEPRESSION
     Dosage: 37.5 MG 1X PER 1 DAY
     Route: 048
     Dates: start: 20040301, end: 20040301
  3. BUDENOFALK (BUDESONIDE) [Concomitant]
  4. MESALAZINE (MESALAZINE) [Concomitant]
  5. CETIRIZINE HCL [Concomitant]

REACTIONS (3)
  - CONDITION AGGRAVATED [None]
  - CROHN'S DISEASE [None]
  - GASTROINTESTINAL HAEMORRHAGE [None]
